FAERS Safety Report 9955619 (Version 2)
Quarter: 2014Q1

REPORT INFORMATION
  Report Type: Report from Study
  Country: US (occurrence: US)
  Receive Date: 20140304
  Receipt Date: 20140304
  Transmission Date: 20141002
  Serious: Yes (Hospitalization)
  Sender: FDA-Public Use
  Company Number: US-ABBVIE-12P-163-0978065-00

PATIENT
  Age: 34 Year
  Sex: Female
  Weight: 94.43 kg

DRUGS (10)
  1. HUMIRA PEN [Suspect]
     Indication: CROHN^S DISEASE
     Dates: start: 20120802, end: 20120802
  2. HUMIRA PEN [Suspect]
     Dates: end: 20120906
  3. HUMIRA PEN [Suspect]
  4. PRILOSEC [Concomitant]
     Indication: OESOPHAGEAL DISORDER
  5. VICODIN [Concomitant]
     Indication: ORAL PAIN
     Dosage: MOSTLY AT NIGHT
  6. ALEVE [Concomitant]
     Indication: ORAL PAIN
  7. VIT D3 [Concomitant]
     Indication: PRODUCT USED FOR UNKNOWN INDICATION
  8. MULTIVITAMIN [Concomitant]
     Indication: PRODUCT USED FOR UNKNOWN INDICATION
     Dosage: DAILY
  9. BENADRYL [Concomitant]
     Indication: INSOMNIA
  10. BENADRYL [Concomitant]
     Indication: SEASONAL ALLERGY

REACTIONS (15)
  - Lobar pneumonia [Recovered/Resolved]
  - Vomiting [Not Recovered/Not Resolved]
  - Stomatitis [Not Recovered/Not Resolved]
  - Pharyngeal ulceration [Not Recovered/Not Resolved]
  - Retching [Not Recovered/Not Resolved]
  - Vomiting [Not Recovered/Not Resolved]
  - Retching [Not Recovered/Not Resolved]
  - Vomiting [Not Recovered/Not Resolved]
  - Cough [Recovering/Resolving]
  - Cough [Recovering/Resolving]
  - Pneumonia necrotising [Recovered/Resolved]
  - Pain [Recovering/Resolving]
  - Mouth ulceration [Unknown]
  - Pneumonia [Unknown]
  - Pulmonary mass [Unknown]
